FAERS Safety Report 8273621-6 (Version None)
Quarter: 2012Q2

REPORT INFORMATION
  Report Type: 
  Country: None (occurrence: None)
  Receive Date: 20120411
  Receipt Date: 20120202
  Transmission Date: 20120825
  Serious: No
  Sender: FDA-Public Use
  Company Number: US-TEVA-320842USA

PATIENT
  Age: 55 Year
  Sex: Female

DRUGS (1)
  1. NUVIGIL [Suspect]
     Dosage: QD
     Route: 048

REACTIONS (1)
  - DEPRESSION [None]
